FAERS Safety Report 25895351 (Version 1)
Quarter: 2025Q4

REPORT INFORMATION
  Report Type: Report from Study
  Country: CA (occurrence: CA)
  Receive Date: 20251008
  Receipt Date: 20251008
  Transmission Date: 20260118
  Serious: Yes (Death, Other)
  Sender: DR REDDYS
  Company Number: CA-DRL-USA-CAN/2025/09/014887

PATIENT
  Age: 81 Year
  Sex: Female

DRUGS (1)
  1. ZOLEDRONIC [Suspect]
     Active Substance: ZOLEDRONIC ACID
     Indication: Osteoporosis
     Dosage: DOSE: 5MG/100ML
     Route: 065
     Dates: start: 20230109

REACTIONS (1)
  - Death [Fatal]

NARRATIVE: CASE EVENT DATE: 20250709
